FAERS Safety Report 4861172-8 (Version None)
Quarter: 2005Q4

REPORT INFORMATION
  Report Type: 
  Country: None (occurrence: None)
  Receive Date: 20051216
  Receipt Date: 20051202
  Transmission Date: 20060501
  Serious: Yes (Hospitalization)
  Sender: FDA-Public Use
  Company Number: 33332

PATIENT
  Age: 24 Year
  Sex: Female

DRUGS (1)
  1. CYCLOPENTOLATE HCL [Suspect]
     Indication: DIAGNOSTIC PROCEDURE
     Dosage: 6 GTTS OU
     Route: 047
     Dates: start: 20050626, end: 20050626

REACTIONS (1)
  - EXTRAPYRAMIDAL DISORDER [None]
